FAERS Safety Report 4690598-0 (Version None)
Quarter: 2005Q2

REPORT INFORMATION
  Report Type: 
  Country: None (occurrence: None)
  Receive Date: 20050615
  Receipt Date: 20050602
  Transmission Date: 20051028
  Serious: Yes (Hospitalization, Other)
  Sender: FDA-Public Use
  Company Number: DE-JNJFOC-20050505292

PATIENT
  Sex: Male
  Weight: 73 kg

DRUGS (3)
  1. RISPERDAL [Suspect]
     Route: 049
     Dates: start: 20050317, end: 20050415
  2. TAVOR [Concomitant]
     Indication: FEAR
     Route: 049
     Dates: start: 20050319, end: 20050415
  3. TAVOR [Concomitant]
     Indication: RESTLESSNESS
     Route: 049
     Dates: start: 20050319, end: 20050415

REACTIONS (2)
  - ARRHYTHMIA [None]
  - BRADYCARDIA [None]
